FAERS Safety Report 23352763 (Version 1)
Quarter: 2023Q4

REPORT INFORMATION
  Report Type: Other
  Country: ES (occurrence: ES)
  Receive Date: 20231230
  Receipt Date: 20231230
  Transmission Date: 20240110
  Serious: Yes (Other)
  Sender: FDA-Public Use
  Company Number: None

PATIENT

DRUGS (2)
  1. RYALTRIS [Suspect]
     Active Substance: MOMETASONE FUROATE MONOHYDRATE\OLOPATADINE HYDROCHLORIDE
     Indication: Product used for unknown indication
     Dosage: UNK
     Route: 065
     Dates: start: 20231208
  2. CARBOCYSTEINE LYSINE [Suspect]
     Active Substance: CARBOCYSTEINE LYSINE
     Indication: Upper respiratory tract infection
     Dosage: 2.7 GRAM, TID
     Route: 048
     Dates: start: 20231208, end: 20231211

REACTIONS (2)
  - Urticaria [Recovered/Resolved]
  - Pain [Recovered/Resolved]

NARRATIVE: CASE EVENT DATE: 20231210
